FAERS Safety Report 24949535 (Version 1)
Quarter: 2025Q1

REPORT INFORMATION
  Report Type: Spontaneous
  Country: US (occurrence: None)
  Receive Date: 20250207
  Receipt Date: 20250207
  Transmission Date: 20250409
  Serious: Yes (Other)
  Sender: FDA-CTU
  Company Number: None

PATIENT
  Age: 77 Year
  Sex: Female

DRUGS (3)
  1. LENALIDOMIDE [Suspect]
     Active Substance: LENALIDOMIDE
     Indication: Plasma cell myeloma
     Dosage: FREQUENCY : DAILY;?
     Route: 048
  2. ASPIRIN LOW TAB 81 MG EC [Concomitant]
  3. XARELTO [Concomitant]
     Active Substance: RIVAROXABAN

REACTIONS (2)
  - Cerebrovascular accident [None]
  - Therapy interrupted [None]

NARRATIVE: CASE EVENT DATE: 20250101
